FAERS Safety Report 9169117 (Version 1)
Quarter: 2013Q1

REPORT INFORMATION
  Report Type: Spontaneous
  Country: JP (occurrence: JP)
  Receive Date: 20130318
  Receipt Date: 20130318
  Transmission Date: 20140127
  Serious: Yes (Other)
  Sender: FDA-Public Use
  Company Number: JP-ROXANE LABORATORIES, INC.-2013-RO-00404RO

PATIENT
  Age: 85 Year
  Sex: Male

DRUGS (1)
  1. DONEPEZIL HYDROCHLORIDE [Suspect]
     Indication: DEMENTIA ALZHEIMER^S TYPE

REACTIONS (4)
  - Aggression [Recovered/Resolved]
  - Abnormal behaviour [Recovered/Resolved]
  - Delusion [Recovered/Resolved]
  - Hallucination [Recovered/Resolved]
